FAERS Safety Report 23084529 (Version 1)
Quarter: 2023Q4

REPORT INFORMATION
  Report Type: Spontaneous
  Country: US (occurrence: None)
  Receive Date: 20231018
  Receipt Date: 20231018
  Transmission Date: 20240110
  Serious: Yes (Hospitalization)
  Sender: FDA-Public Use
  Company Number: None

PATIENT
  Sex: Female

DRUGS (5)
  1. XOLAIR [Suspect]
     Active Substance: OMALIZUMAB
     Indication: Asthma
     Route: 058
     Dates: start: 20230926
  2. IPRATROPIUM/SOL ALBUTER [Concomitant]
  3. NUCALA [Concomitant]
     Active Substance: MEPOLIZUMAB
  4. NUCALA [Concomitant]
     Active Substance: MEPOLIZUMAB
  5. TRELEGY AER [Concomitant]

REACTIONS (2)
  - Asthma [None]
  - Condition aggravated [None]
